FAERS Safety Report 11195694 (Version 1)
Quarter: 2015Q2

REPORT INFORMATION
  Report Type: Spontaneous
  Country: US (occurrence: None)
  Receive Date: 20150615
  Receipt Date: 20150615
  Transmission Date: 20150821
  Serious: No
  Sender: FDA-Public Use
  Company Number: None

PATIENT
  Age: 30 Year
  Sex: Female
  Weight: 63.96 kg

DRUGS (6)
  1. APIDRA [Concomitant]
     Active Substance: INSULIN GLULISINE
  2. ALAVERT ALLERGY [Concomitant]
     Active Substance: LORATADINE
  3. AUGMENTED BETAMETHASONE DIPROPIONATE OINTMENT [Concomitant]
  4. IBUPROFEN. [Concomitant]
     Active Substance: IBUPROFEN
  5. KENALOG [Suspect]
     Active Substance: TRIAMCINOLONE ACETONIDE
     Indication: SEBORRHOEIC DERMATITIS
     Dosage: SPRAY NO MORE THAN 3X/DAY AS NEEDED APPLIED TO A SURFACE, USUALLY THE SKIN
     Dates: start: 20150608, end: 20150611
  6. LANTUS [Concomitant]
     Active Substance: INSULIN GLARGINE

REACTIONS (3)
  - Application site pain [None]
  - Application site folliculitis [None]
  - Application site pruritus [None]

NARRATIVE: CASE EVENT DATE: 20150611
